FAERS Safety Report 4650604-6 (Version None)
Quarter: 2005Q2

REPORT INFORMATION
  Report Type: 
  Country: None (occurrence: None)
  Receive Date: 20050428
  Receipt Date: 20050428
  Transmission Date: 20051028
  Serious: No
  Sender: FDA-Public Use
  Company Number: None

PATIENT
  Sex: Male
  Weight: 101.4 kg

DRUGS (4)
  1. INTERFERON-ALPHA [Suspect]
     Indication: RENAL CELL CARCINOMA STAGE UNSPECIFIED
     Dosage: 9.0 MU SC 3X/WEEK. CYCLE = 4
     Route: 058
     Dates: start: 20050103
  2. GLUCO-FLEX [Concomitant]
  3. METFORMIN [Concomitant]
  4. VICODIN [Concomitant]

REACTIONS (11)
  - AGITATION [None]
  - ANXIETY [None]
  - BLOOD GLUCOSE INCREASED [None]
  - CONFUSIONAL STATE [None]
  - COUGH [None]
  - DRUG DOSE OMISSION [None]
  - DYSPNOEA [None]
  - FAMILY STRESS [None]
  - HYPERHIDROSIS [None]
  - PERSONALITY CHANGE [None]
  - RETCHING [None]
